FAERS Safety Report 11782784 (Version 2)
Quarter: 2015Q4

REPORT INFORMATION
  Report Type: Report from Study
  Country: CA (occurrence: CA)
  Receive Date: 20151127
  Receipt Date: 20151229
  Transmission Date: 20160305
  Serious: Yes (Other)
  Sender: FDA-Public Use
  Company Number: CA-ROCHE-1646240

PATIENT
  Sex: Female

DRUGS (15)
  1. ESBRIET [Suspect]
     Active Substance: PIRFENIDONE
     Indication: IDIOPATHIC PULMONARY FIBROSIS
     Route: 048
     Dates: start: 20150929
  2. EURO-FER [Concomitant]
  3. DOCUSATE SODIUM. [Concomitant]
     Active Substance: DOCUSATE SODIUM
  4. SENOKOT [Concomitant]
     Active Substance: SENNOSIDES
  5. PANTOPRAZOLE [Concomitant]
     Active Substance: PANTOPRAZOLE SODIUM
  6. CLOPIDOGREL [Concomitant]
     Active Substance: CLOPIDOGREL BISULFATE
  7. ASA [Concomitant]
     Active Substance: ASPIRIN
  8. EZETROL [Concomitant]
     Active Substance: EZETIMIBE
  9. ESBRIET [Suspect]
     Active Substance: PIRFENIDONE
     Dosage: 3 CAPSULES/TID
     Route: 048
     Dates: start: 201510
  10. SYMBICORT [Concomitant]
     Active Substance: BUDESONIDE\FORMOTEROL FUMARATE DIHYDRATE
  11. SALBUTAMOL [Concomitant]
     Active Substance: ALBUTEROL
  12. ROSUVASTATIN [Concomitant]
     Active Substance: ROSUVASTATIN
  13. OXYGEN. [Concomitant]
     Active Substance: OXYGEN
  14. NEXIUM [Concomitant]
     Active Substance: ESOMEPRAZOLE MAGNESIUM
  15. DILTIAZEM [Concomitant]
     Active Substance: DILTIAZEM

REACTIONS (3)
  - Blood pressure increased [Unknown]
  - Hypogeusia [Not Recovered/Not Resolved]
  - Dyspepsia [Not Recovered/Not Resolved]
